FAERS Safety Report 21279070 (Version 1)
Quarter: 2022Q3

REPORT INFORMATION
  Report Type: Spontaneous
  Country: FR (occurrence: FR)
  Receive Date: 20220901
  Receipt Date: 20220901
  Transmission Date: 20221026
  Serious: Yes (Hospitalization, Other)
  Sender: FDA-Public Use
  Company Number: None

PATIENT
  Age: 17 Year
  Sex: Male

DRUGS (12)
  1. CLONAZEPAM [Suspect]
     Active Substance: CLONAZEPAM
     Indication: Substance use
     Route: 048
  2. CANNABIS SATIVA SUBSP. INDICA TOP [Suspect]
     Active Substance: CANNABIS SATIVA SUBSP. INDICA TOP
     Indication: Substance use
     Route: 048
  3. LYRICA [Suspect]
     Active Substance: PREGABALIN
     Indication: Arthralgia
     Dosage: HE TAKES LYRICA FOR HIS KNEE PAIN (THIS DRUG IS NOT PRESCRIBED TO HIM)
     Route: 048
  4. NORDAZEPAM [Suspect]
     Active Substance: NORDAZEPAM
  5. ACETAMINOPHEN [Suspect]
     Active Substance: ACETAMINOPHEN
  6. DRONABINOL [Suspect]
     Active Substance: DRONABINOL
  7. COCAINE [Suspect]
     Active Substance: COCAINE
  8. BENZOYLECGONINE [Suspect]
     Active Substance: BENZOYLECGONINE
  9. HYDROXYZINE [Suspect]
     Active Substance: HYDROXYZINE HYDROCHLORIDE
  10. CETIRIZINE [Suspect]
     Active Substance: CETIRIZINE HYDROCHLORIDE
  11. TRAMADOL HYDROCHLORIDE [Suspect]
     Active Substance: TRAMADOL HYDROCHLORIDE
     Indication: Arthralgia
     Dosage: LAST PRESCRIPTION DATED END /05/2022)
  12. DOLIPRANE [Suspect]
     Active Substance: ACETAMINOPHEN
     Indication: Arthralgia
     Dosage: LAST PRESCRIPTION DATED END /05/2022)

REACTIONS (4)
  - Altered state of consciousness [Recovered/Resolved]
  - Drug abuse [Unknown]
  - Bradycardia [Recovered/Resolved]
  - Hypothermia [Recovered/Resolved]

NARRATIVE: CASE EVENT DATE: 20220601
